FAERS Safety Report 4308739-3 (Version None)
Quarter: 2004Q1

REPORT INFORMATION
  Report Type: 
  Country: None (occurrence: None)
  Receive Date: 20040301
  Receipt Date: 20040301
  Transmission Date: 20041129
  Serious: Yes (Hospitalization)
  Sender: FDA-Public Use
  Company Number: None

PATIENT
  Age: 24 Year
  Sex: Female

DRUGS (1)
  1. LIDOCAINE [Suspect]

REACTIONS (5)
  - DIZZINESS [None]
  - DYSPNOEA [None]
  - FLUSHING [None]
  - HYPERVENTILATION [None]
  - RASH [None]
